FAERS Safety Report 4468032-5 (Version None)
Quarter: 2004Q4

REPORT INFORMATION
  Report Type: 
  Country: None (occurrence: None)
  Receive Date: 20041004
  Receipt Date: 20041004
  Transmission Date: 20050328
  Serious: Yes (Other)
  Sender: FDA-Public Use
  Company Number: None

PATIENT
  Age: 83 Year
  Sex: Male
  Weight: 93 kg

DRUGS (7)
  1. TERAZOSIN HCL [Suspect]
  2. FUROSEMIDE [Concomitant]
  3. IRBESARTAN [Concomitant]
  4. ATENOLOL [Concomitant]
  5. COUMADIN [Concomitant]
  6. TAMSULOSIN HCL [Concomitant]
  7. LANOXIN [Concomitant]

REACTIONS (1)
  - HYPOTENSION [None]
